FAERS Safety Report 7207998-7 (Version None)
Quarter: 2010Q4

REPORT INFORMATION
  Report Type: 
  Country: None (occurrence: None)
  Receive Date: 20101230
  Receipt Date: 20101230
  Transmission Date: 20110411
  Serious: No
  Sender: FDA-Public Use
  Company Number: None

PATIENT
  Sex: Male
  Weight: 87.0906 kg

DRUGS (3)
  1. CUBICIN [Suspect]
     Indication: LOCALISED INFECTION
     Dosage: 540 MG Q24H IV
     Route: 042
     Dates: start: 20101123, end: 20101201
  2. CUBICIN [Suspect]
     Indication: OSTEOMYELITIS
     Dosage: 540 MG Q24H IV
     Route: 042
     Dates: start: 20101123, end: 20101201
  3. CUBICIN [Suspect]

REACTIONS (3)
  - BLOOD CREATINE PHOSPHOKINASE INCREASED [None]
  - MYALGIA [None]
  - MYOPATHY [None]
